FAERS Safety Report 19357482 (Version 1)
Quarter: 2021Q2

REPORT INFORMATION
  Report Type: Spontaneous
  Country: US (occurrence: US)
  Receive Date: 20210531
  Receipt Date: 20210531
  Transmission Date: 20210717
  Serious: Yes (Hospitalization)
  Sender: FDA-Public Use
  Company Number: US-CPL-002349

PATIENT
  Age: 60 Year
  Sex: Female

DRUGS (4)
  1. HYDRALAZINE/HYDRALAZINE HYDROCHLORIDE [Suspect]
     Active Substance: HYDRALAZINE HYDROCHLORIDE
     Indication: HYPERTENSION
  2. HYDROCHLOROTHIAZIDE. [Concomitant]
     Active Substance: HYDROCHLOROTHIAZIDE
  3. METOPROLOL. [Concomitant]
     Active Substance: METOPROLOL
  4. POTASSIUM [Concomitant]
     Active Substance: POTASSIUM

REACTIONS (1)
  - Vasculitis [Recovered/Resolved]
